FAERS Safety Report 7884605-1 (Version None)
Quarter: 2011Q4

REPORT INFORMATION
  Report Type: 
  Country: None (occurrence: None)
  Receive Date: 20111102
  Receipt Date: 20111024
  Transmission Date: 20120403
  Serious: Yes (Other)
  Sender: FDA-Public Use
  Company Number: MX-SANOFI-AVENTIS-2011SA070285

PATIENT
  Age: 68 Year
  Sex: Female
  Weight: 58 kg

DRUGS (4)
  1. LYRICA [Concomitant]
     Route: 048
  2. GLIMEPIRIDE [Suspect]
     Route: 048
     Dates: start: 20110901, end: 20111025
  3. ALL OTHER THERAPEUTIC PRODUCTS [Concomitant]
  4. GLIMEPIRIDE [Suspect]
     Indication: TYPE 2 DIABETES MELLITUS
     Route: 048
     Dates: start: 20080101, end: 20110901

REACTIONS (5)
  - DRY MOUTH [None]
  - HEADACHE [None]
  - WEIGHT DECREASED [None]
  - HYPERGLYCAEMIA [None]
  - DIZZINESS [None]
